FAERS Safety Report 7633445 (Version 5)
Quarter: 2014Q1

REPORT INFORMATION
  Report Type: Spontaneous
  Country: US (occurrence: US)
  Receive Date: 20101019
  Receipt Date: 20140317
  Transmission Date: 20141002
  Serious: Yes (Hospitalization, Other)
  Sender: FDA-Public Use
  Company Number: US-CELGENEUS-163-21880-10052578

PATIENT
  Age: 80 Year
  Sex: Female

DRUGS (8)
  1. REVLIMID [Suspect]
     Indication: PLASMA CELL MYELOMA
     Dosage: 25 MILLIGRAM
     Route: 048
     Dates: start: 20071123
  2. REVLIMID [Suspect]
     Dosage: 15 MILLIGRAM
     Route: 048
     Dates: start: 200803
  3. REVLIMID [Suspect]
     Dosage: 25 MILLIGRAM
     Route: 048
     Dates: start: 200903
  4. REVLIMID [Suspect]
     Dosage: 10 MILLIGRAM
     Route: 048
     Dates: start: 20100317
  5. OXYCODONE [Suspect]
     Indication: PAIN
     Route: 065
  6. FENTANYL [Suspect]
     Indication: PAIN
     Route: 065
  7. DEXAMETHASONE [Concomitant]
     Indication: PLASMA CELL MYELOMA
     Route: 065
     Dates: start: 20100317
  8. ZOMETA [Concomitant]
     Indication: PRODUCT USED FOR UNKNOWN INDICATION
     Route: 065

REACTIONS (10)
  - Eye disorder [Unknown]
  - Chest pain [Unknown]
  - Joint swelling [Unknown]
  - Pruritus [Unknown]
  - Spinal compression fracture [Unknown]
  - Contusion [Unknown]
  - Dry skin [Unknown]
  - Diarrhoea [Unknown]
  - Muscle spasms [Unknown]
  - Constipation [Unknown]
